FAERS Safety Report 23488838 (Version 1)
Quarter: 2024Q1

REPORT INFORMATION
  Report Type: Spontaneous
  Country: US (occurrence: US)
  Receive Date: 20240206
  Receipt Date: 20240206
  Transmission Date: 20240410
  Serious: No
  Sender: FDA-Public Use
  Company Number: US-MYLANLABS-2024M1008765

PATIENT
  Age: 70 Year
  Sex: Female

DRUGS (1)
  1. TYRVAYA [Suspect]
     Active Substance: VARENICLINE TARTRATE
     Indication: Product used for unknown indication
     Dosage: UNK
     Route: 045
     Dates: start: 202401

REACTIONS (2)
  - Feeling abnormal [Unknown]
  - Cough [Unknown]

NARRATIVE: CASE EVENT DATE: 20240101
